FAERS Safety Report 4446503-5 (Version None)
Quarter: 2004Q3

REPORT INFORMATION
  Report Type: 
  Country: None (occurrence: None)
  Receive Date: 20040908
  Receipt Date: 20040826
  Transmission Date: 20050211
  Serious: No
  Sender: FDA-Public Use
  Company Number: 04H-163-0271714-00

PATIENT
  Age: 5 Year
  Sex: 0

DRUGS (2)
  1. MEPERIDINE HCL [Suspect]
     Indication: SEDATION
     Dosage: 2 MG/KG, UP TO 75 MG, GIVEN OVER 5 MINUTES, INTRAVENOUS
     Route: 042
  2. MIDAZOLAM HYDROCHLORIDE [Suspect]
     Indication: SEDATION
     Dosage: 0.1 MG/KG, UP TO 3 MG, GIVEN OVER 3 MINUTES, INTRAVENOUS
     Route: 042

REACTIONS (2)
  - BRADYCARDIA [None]
  - HYPOXIA [None]
